FAERS Safety Report 7577105-X (Version None)
Quarter: 2011Q2

REPORT INFORMATION
  Report Type: 
  Country: None (occurrence: None)
  Receive Date: 20110628
  Receipt Date: 20110613
  Transmission Date: 20111010
  Serious: Yes (Hospitalization)
  Sender: FDA-Public Use
  Company Number: US-BAYER-201038259NA

PATIENT
  Age: 42 Year
  Sex: Female
  Weight: 86.168 kg

DRUGS (14)
  1. YAZ [Suspect]
     Indication: HYPERCHOLESTEROLAEMIA
     Route: 048
  2. BACLOFEN [Concomitant]
  3. ALBUTEROL SULFATE AUTOHALER [Concomitant]
  4. PREVACID [Concomitant]
     Indication: ABDOMINAL PAIN UPPER
  5. PREVACID [Concomitant]
     Dosage: 30 MG, UNK
     Route: 048
  6. YASMIN [Suspect]
     Indication: ACNE
     Route: 048
     Dates: start: 20020101, end: 20040101
  7. XOPENEX [Concomitant]
     Indication: ASTHMA
  8. ULTRAM [Concomitant]
  9. NORVASC [Concomitant]
     Dosage: 10 MG, UNK
     Route: 048
  10. PROTONIX [Concomitant]
  11. HYDROCHLOROTHIAZIDE [Concomitant]
     Dosage: 25 MG, UNK
     Route: 048
  12. TRAMADOL HCL [Concomitant]
     Dosage: 50 MG, UNK
     Route: 048
  13. AMLODIPINE [Concomitant]
     Indication: HYPERTENSION
  14. SIMVASTATIN [Concomitant]
     Indication: HYPERCHOLESTEROLAEMIA

REACTIONS (6)
  - BILIARY COLIC [None]
  - CHOLECYSTITIS CHRONIC [None]
  - VOMITING [None]
  - ABDOMINAL PAIN UPPER [None]
  - CHOLELITHIASIS [None]
  - NAUSEA [None]
